FAERS Safety Report 15180412 (Version 1)
Quarter: 2018Q3

REPORT INFORMATION
  Report Type: Other
  Country: JP (occurrence: JP)
  Receive Date: 20180723
  Receipt Date: 20180723
  Transmission Date: 20181010
  Serious: Yes (Hospitalization)
  Sender: FDA-Public Use
  Company Number: JP-ORCHID HEALTHCARE-2052568

PATIENT
  Age: 38 Year
  Sex: Male

DRUGS (2)
  1. BROTIZOLAM [Suspect]
     Active Substance: BROTIZOLAM
     Route: 065
  2. ESZOPICLONE. [Suspect]
     Active Substance: ESZOPICLONE
     Route: 065

REACTIONS (4)
  - White blood cell count increased [Recovered/Resolved]
  - Suicidal ideation [Recovered/Resolved]
  - Loss of consciousness [Recovered/Resolved]
  - Overdose [Unknown]
